FAERS Safety Report 15561870 (Version 1)
Quarter: 2018Q4

REPORT INFORMATION
  Report Type: Spontaneous
  Country: US (occurrence: US)
  Receive Date: 20181024
  Receipt Date: 20181024
  Transmission Date: 20190205
  Serious: Yes (Hospitalization)
  Sender: FDA-Public Use
  Company Number: None

PATIENT
  Age: 53 Year
  Sex: Male
  Weight: 75.75 kg

DRUGS (1)
  1. VITAMIN D3 [Suspect]
     Active Substance: CHOLECALCIFEROL
     Indication: VITAMIN D DEFICIENCY
     Route: 048
     Dates: start: 20181011

REACTIONS (6)
  - Computerised tomogram thorax abnormal [None]
  - Haemoglobin decreased [None]
  - Packed red blood cell transfusion [None]
  - Haematocrit decreased [None]
  - Lung abscess [None]
  - Pneumonia [None]

NARRATIVE: CASE EVENT DATE: 20181019
